FAERS Safety Report 10055655 (Version 1)
Quarter: 2014Q2

REPORT INFORMATION
  Report Type: Spontaneous
  Country: US (occurrence: None)
  Receive Date: 20140403
  Receipt Date: 20140403
  Transmission Date: 20141212
  Serious: Yes (Life-Threatening, Hospitalization, Disabling, Other)
  Sender: FDA-Public Use
  Company Number: None

PATIENT
  Sex: 0

DRUGS (1)
  1. CYMBALTA [Suspect]
     Indication: MUSCULOSKELETAL PAIN
     Dosage: 60MG, ONCE DAILY
     Dates: start: 20110501, end: 20110727

REACTIONS (3)
  - Haemorrhage [None]
  - Hepatic encephalopathy [None]
  - Liver transplant [None]
